FAERS Safety Report 7310901-2 (Version None)
Quarter: 2011Q1

REPORT INFORMATION
  Report Type: 
  Country: None (occurrence: None)
  Receive Date: 20110224
  Receipt Date: 20110215
  Transmission Date: 20110831
  Serious: Yes (Hospitalization)
  Sender: FDA-Public Use
  Company Number: US-JNJFOC-20110205204

PATIENT
  Sex: Male
  Weight: 68.04 kg

DRUGS (4)
  1. FENTANYL-100 [Suspect]
     Indication: PAIN
     Route: 062
  2. PERCOCET [Concomitant]
     Indication: BREAKTHROUGH PAIN
     Dosage: 10/650 MG AS NEEDED
     Route: 048
  3. FENTANYL-100 [Suspect]
     Route: 062
  4. SYNTHROID [Concomitant]
     Indication: THYROID DISORDER
     Route: 048

REACTIONS (9)
  - DRUG EFFECT DECREASED [None]
  - WITHDRAWAL SYNDROME [None]
  - APPLICATION SITE REACTION [None]
  - WEIGHT INCREASED [None]
  - INCORRECT DRUG ADMINISTRATION DURATION [None]
  - DYSPNOEA [None]
  - TREMOR [None]
  - ARTERIAL OCCLUSIVE DISEASE [None]
  - SKIN INJURY [None]
